FAERS Safety Report 6309210-X (Version None)
Quarter: 2009Q3

REPORT INFORMATION
  Report Type: 
  Country: None (occurrence: None)
  Receive Date: 20090814
  Receipt Date: 20090806
  Transmission Date: 20100115
  Serious: Yes (Hospitalization)
  Sender: FDA-Public Use
  Company Number: PL-WYE-H10366709

PATIENT
  Sex: Male
  Weight: 93 kg

DRUGS (2)
  1. TEMSIROLIMUS [Suspect]
     Indication: RENAL CELL CARCINOMA
     Route: 042
     Dates: start: 20090204, end: 20090722
  2. BEVACIZUMAB [Suspect]
     Indication: RENAL CELL CARCINOMA
     Route: 042
     Dates: start: 20090204, end: 20090722

REACTIONS (1)
  - ANAL FISSURE [None]
